FAERS Safety Report 6252195-5 (Version None)
Quarter: 2009Q2

REPORT INFORMATION
  Report Type: 
  Country: None (occurrence: None)
  Receive Date: 20090629
  Receipt Date: 20090624
  Transmission Date: 20091009
  Serious: Yes (Hospitalization)
  Sender: FDA-Public Use
  Company Number: JHP200900203

PATIENT
  Age: 20 Year
  Sex: Male

DRUGS (1)
  1. KETALAR [Suspect]
     Indication: DRUG ABUSE
     Dosage: 6 G, DAILY

REACTIONS (6)
  - CYSTITIS [None]
  - DRUG ABUSE [None]
  - HAEMATURIA [None]
  - LOSS OF EMPLOYMENT [None]
  - POOR QUALITY SLEEP [None]
  - SEXUALLY TRANSMITTED DISEASE [None]
